FAERS Safety Report 5096571-5 (Version None)
Quarter: 2006Q3

REPORT INFORMATION
  Report Type: 
  Country: None (occurrence: None)
  Receive Date: 20060831
  Receipt Date: 20060818
  Transmission Date: 20061208
  Serious: Yes (Other)
  Sender: FDA-Public Use
  Company Number: 2006101794

PATIENT
  Age: 72 Year
  Sex: Female
  Weight: 88.4514 kg

DRUGS (3)
  1. SUTENT [Suspect]
     Indication: RENAL CELL CARCINOMA STAGE UNSPECIFIED
     Dosage: 50 MG (50 MG, FREQUENCY:  QD INTERVAL: EVERY DAY
     Dates: start: 20060404, end: 20060801
  2. WARFARIN SODIUM [Concomitant]
  3. AVANDIA [Concomitant]

REACTIONS (1)
  - NEPHROPATHY TOXIC [None]
